FAERS Safety Report 21319701 (Version 1)
Quarter: 2022Q3

REPORT INFORMATION
  Report Type: Spontaneous
  Country: US (occurrence: US)
  Receive Date: 20220911
  Receipt Date: 20220911
  Transmission Date: 20221027
  Serious: Yes (Other)
  Sender: FDA-Public Use
  Company Number: US-SA-SAC20220905000637

PATIENT
  Age: 52 Year
  Sex: Female

DRUGS (2)
  1. KEVZARA [Suspect]
     Active Substance: SARILUMAB
     Indication: Rheumatoid arthritis
     Dosage: 400 MG, QOW
     Route: 058
     Dates: start: 20220428, end: 2022
  2. CIMZIA [Suspect]
     Active Substance: CERTOLIZUMAB PEGOL
     Dosage: INJECT 2 SYRINGES, 400 MG UNDER THE SKIN AT WEEKS 0, 2 AND 4 THEN INJECT 1 SYRINGE, 200 MG UNDER THE

REACTIONS (1)
  - Cellulitis [Unknown]
